FAERS Safety Report 5450639-X (Version None)
Quarter: 2007Q3

REPORT INFORMATION
  Report Type: 
  Country: None (occurrence: None)
  Receive Date: 20070910
  Receipt Date: 20070829
  Transmission Date: 20080115
  Serious: Yes (Other)
  Sender: FDA-Public Use
  Company Number: 234435K07USA

PATIENT
  Age: 56 Year
  Sex: Female

DRUGS (6)
  1. REBIF [Suspect]
     Indication: MULTIPLE SCLEROSIS
     Dosage: 8.8 MCG, 44 MCG, 3 IN WEEKS, SUBCUTANEOUS
     Route: 058
     Dates: start: 20070307, end: 20070101
  2. REBIF [Suspect]
     Indication: MULTIPLE SCLEROSIS
     Dosage: 8.8 MCG, 44 MCG, 3 IN WEEKS, SUBCUTANEOUS
     Route: 058
     Dates: start: 20070101
  3. REQUIP [Concomitant]
  4. PAXIL [Concomitant]
  5. HORMONE REPLACEMENT THERAPY (HORMONES AND RELATED AGENTS) [Concomitant]
  6. STEROIDS (CORTICOSTEROIDS FOR SYSTEMIC USE) [Concomitant]

REACTIONS (6)
  - CONDITION AGGRAVATED [None]
  - DEPRESSION [None]
  - ERYTHEMA [None]
  - METRORRHAGIA [None]
  - SKIN LACERATION [None]
  - THROMBOSIS [None]
